FAERS Safety Report 15604625 (Version 2)
Quarter: 2018Q4

REPORT INFORMATION
  Report Type: Spontaneous
  Country: US (occurrence: US)
  Receive Date: 20181111
  Receipt Date: 20181120
  Transmission Date: 20190205
  Serious: No
  Sender: FDA-Public Use
  Company Number: US-JNJFOC-20181036110

PATIENT
  Age: 46 Year
  Sex: Female
  Weight: 73.48 kg

DRUGS (2)
  1. MENS ROGAINE EXTRA STRENGTH UNSCENTED [Suspect]
     Active Substance: MINOXIDIL
     Indication: ALOPECIA
     Dosage: 1/2 CAP FULL ONCE EVERY OTHER DAY.
     Route: 061
  2. MENS ROGAINE EXTRA STRENGTH UNSCENTED [Suspect]
     Active Substance: MINOXIDIL
     Indication: ALOPECIA
     Dosage: HALF CAPFUL
     Route: 061
     Dates: start: 20161031

REACTIONS (3)
  - Intentional product misuse [Unknown]
  - Product formulation issue [Unknown]
  - Product use issue [Unknown]

NARRATIVE: CASE EVENT DATE: 20161031
